FAERS Safety Report 14367270 (Version 1)
Quarter: 2018Q1

REPORT INFORMATION
  Report Type: Report from Study
  Country: US (occurrence: US)
  Receive Date: 20180109
  Receipt Date: 20180109
  Transmission Date: 20180509
  Serious: Yes (Other)
  Sender: FDA-Public Use
  Company Number: US-CIPLA (EU) LIMITED-2017US30313

PATIENT

DRUGS (2)
  1. PACLITAXEL. [Suspect]
     Active Substance: PACLITAXEL
     Indication: PANCREATIC CARCINOMA METASTATIC
     Dosage: 125 MG/M2, 1, 8 AND 15 DAY OF 28-DAY CYCLE (WITH RESTAGING EVERY 2 CYCLE)
     Route: 042
  2. GEMCITABINE [Suspect]
     Active Substance: GEMCITABINE\GEMCITABINE HYDROCHLORIDE
     Indication: PANCREATIC CARCINOMA METASTATIC
     Dosage: 1000 MG/M2,1, 8 AND 15 DAY OF 28-DAY CYCLE (WITH RESTAGING EVERY 2 CYCLE)
     Route: 042

REACTIONS (2)
  - Pancreatic carcinoma metastatic [Unknown]
  - Disease progression [Unknown]
